FAERS Safety Report 17324908 (Version 1)
Quarter: 2020Q1

REPORT INFORMATION
  Report Type: Spontaneous
  Country: SE (occurrence: SE)
  Receive Date: 20200125
  Receipt Date: 20200125
  Transmission Date: 20200409
  Serious: Yes (Hospitalization, Disabling, Other)
  Sender: FDA-Public Use
  Company Number: None

PATIENT
  Age: 24 Year
  Sex: Male
  Weight: 70 kg

DRUGS (1)
  1. PROPECIA [Suspect]
     Active Substance: FINASTERIDE
     Indication: ALOPECIA
     Route: 048

REACTIONS (5)
  - Visual impairment [None]
  - Cognitive disorder [None]
  - Feeling abnormal [None]
  - Arrhythmia [None]
  - Drug withdrawal syndrome [None]

NARRATIVE: CASE EVENT DATE: 20040701
